FAERS Safety Report 9933204 (Version 5)
Quarter: 2014Q2

REPORT INFORMATION
  Report Type: Report from Study
  Country: DE (occurrence: DE)
  Receive Date: 20140228
  Receipt Date: 20140619
  Transmission Date: 20141212
  Serious: Yes (Other)
  Sender: FDA-Public Use
  Company Number: DE-INCYTE CORPORATION-2014IN000471

PATIENT
  Sex: Female

DRUGS (5)
  1. INCB018424 [Suspect]
     Indication: POLYCYTHAEMIA VERA
     Dosage: 30 MG, PER DAY
     Route: 048
     Dates: start: 20131021
  2. INCB018424 [Suspect]
     Dosage: 40 MG, PER DAY
     Route: 048
     Dates: start: 20131127
  3. CLARITHROMYCIN [Concomitant]
     Dosage: 1000 MG, PER DAY
     Dates: start: 20131105, end: 20131115
  4. DICLOFENAC [Concomitant]
     Dosage: UNK
     Dates: start: 20131218
  5. IBUPROFEN [Concomitant]
     Dosage: 1200 MG, PER DAY
     Dates: start: 20140108

REACTIONS (1)
  - Monocyte count increased [Recovering/Resolving]
